FAERS Safety Report 5874297-5 (Version None)
Quarter: 2008Q3

REPORT INFORMATION
  Report Type: 
  Country: None (occurrence: None)
  Receive Date: 20080908
  Receipt Date: 20080827
  Transmission Date: 20090109
  Serious: Yes (Other)
  Sender: FDA-Public Use
  Company Number: JP-AMGEN-US298538

PATIENT
  Sex: Male

DRUGS (9)
  1. ENBREL [Suspect]
     Indication: RHEUMATOID ARTHRITIS
     Dosage: INJECTION; 25 MG 2 X PER 1 WK
     Route: 058
     Dates: start: 20070803
  2. MUCOSTA [Concomitant]
  3. RHEUMATREX [Concomitant]
     Dosage: NOT SPECIFIED
     Dates: start: 20041001
  4. AURANOFIN [Concomitant]
     Dosage: NOT SPECIFIED
     Dates: start: 20040701
  5. PREDNISOLONE [Concomitant]
  6. ACTARIT [Concomitant]
     Dosage: NOT SPECIFIED
     Dates: start: 20020901
  7. SULFASALAZINE [Concomitant]
     Dosage: NOT SPECIFIED
     Dates: start: 20031201
  8. ETODOLAC [Concomitant]
     Dosage: NOT SPECIFIED
     Dates: start: 20020901
  9. BONALON [Concomitant]

REACTIONS (2)
  - GYNAECOMASTIA [None]
  - HIP ARTHROPLASTY [None]
